FAERS Safety Report 17133239 (Version 1)
Quarter: 2019Q4

REPORT INFORMATION
  Report Type: Spontaneous
  Country: US (occurrence: US)
  Receive Date: 20191209
  Receipt Date: 20191209
  Transmission Date: 20200122
  Serious: Yes (Other)
  Sender: FDA-Public Use
  Company Number: None

PATIENT
  Age: 66 Year
  Sex: Female
  Weight: 74.8 kg

DRUGS (5)
  1. PROPARACAINE OPTHALMIC SOLUTION [Suspect]
     Active Substance: PROPARACAINE HYDROCHLORIDE
     Indication: CATARACT OPERATION
     Dosage: ?          OTHER FREQUENCY:EVERY 30 MINUTES;?
     Route: 047
     Dates: start: 20191209, end: 20191209
  2. TROPICAMIDE 1% [Concomitant]
     Active Substance: TROPICAMIDE
     Dates: start: 20191209, end: 20191209
  3. PHENYLEPHRINE [Concomitant]
     Active Substance: PHENYLEPHRINE HYDROCHLORIDE
     Dates: start: 20191209, end: 20191209
  4. CYCLOPENTOLATE 1% DROP [Concomitant]
     Dates: start: 20191209, end: 20191209
  5. PROPARACAINE OPTHALMIC SOLUTION [Suspect]
     Active Substance: PROPARACAINE HYDROCHLORIDE
     Indication: POSTOPERATIVE CARE
     Dosage: ?          OTHER FREQUENCY:EVERY 30 MINUTES;?
     Route: 047
     Dates: start: 20191209, end: 20191209

REACTIONS (1)
  - Pain [None]

NARRATIVE: CASE EVENT DATE: 20191209
